FAERS Safety Report 7703713-9 (Version None)
Quarter: 2011Q3

REPORT INFORMATION
  Report Type: 
  Country: None (occurrence: None)
  Receive Date: 20110823
  Receipt Date: 20110815
  Transmission Date: 20111222
  Serious: Yes (Hospitalization, Other)
  Sender: FDA-Public Use
  Company Number: US-AMGEN-USASP2011041523

PATIENT
  Age: 59 Year
  Sex: Female

DRUGS (1)
  1. ENBREL [Suspect]
     Indication: RHEUMATOID ARTHRITIS
     Dosage: 50 MG, QWK
     Dates: start: 20081101

REACTIONS (9)
  - BUNION [None]
  - FOOT DEFORMITY [None]
  - FOOT OPERATION [None]
  - CATARACT [None]
  - VENOUS INSUFFICIENCY [None]
  - MUSCLE SPASMS [None]
  - FALL [None]
  - LIMB INJURY [None]
  - RHEUMATOID ARTHRITIS [None]
